FAERS Safety Report 5968714-X (Version None)
Quarter: 2008Q4

REPORT INFORMATION
  Report Type: 
  Country: None (occurrence: None)
  Receive Date: 20081126
  Receipt Date: 20081121
  Transmission Date: 20090506
  Serious: Yes (Hospitalization)
  Sender: FDA-Public Use
  Company Number: A0736741A

PATIENT
  Age: 61 Year
  Sex: Male
  Weight: 113.6 kg

DRUGS (5)
  1. AVANDIA [Suspect]
     Indication: TYPE 2 DIABETES MELLITUS
     Dosage: 8MG PER DAY
     Route: 048
     Dates: start: 19991222, end: 20070115
  2. GLUCOPHAGE [Concomitant]
     Dates: start: 20000201, end: 20000401
  3. METFORMIN HCL [Concomitant]
     Dosage: 250MG PER DAY
     Dates: start: 20030101
  4. DIABETA [Concomitant]
     Dates: start: 20001201, end: 20040701
  5. GLUCOTROL XL [Concomitant]
     Dates: start: 19980401, end: 19980801

REACTIONS (19)
  - ANAEMIA [None]
  - ARRHYTHMIA [None]
  - CARDIAC FAILURE CONGESTIVE [None]
  - CARDIOMEGALY [None]
  - CONDITION AGGRAVATED [None]
  - CORONARY ARTERY DISEASE [None]
  - DEPRESSION [None]
  - DIABETES MELLITUS [None]
  - DIASTOLIC DYSFUNCTION [None]
  - EMPHYSEMA [None]
  - FLUID RETENTION [None]
  - GLAUCOMA [None]
  - HYPERTENSION [None]
  - LEFT VENTRICULAR HYPERTROPHY [None]
  - OBSTRUCTIVE AIRWAYS DISORDER [None]
  - PLEURAL EFFUSION [None]
  - RESPIRATORY DISTRESS [None]
  - SWELLING [None]
  - WEIGHT INCREASED [None]
